FAERS Safety Report 18756706 (Version 1)
Quarter: 2021Q1

REPORT INFORMATION
  Report Type: Report from Study
  Country: GB (occurrence: GB)
  Receive Date: 20210119
  Receipt Date: 20210119
  Transmission Date: 20210419
  Serious: Yes (Other)
  Sender: FDA-Public Use
  Company Number: GB-MYLANLABS-2021M1002633

PATIENT
  Age: 57 Year
  Sex: Female

DRUGS (3)
  1. DILTIAZEM. [Suspect]
     Active Substance: DILTIAZEM
     Indication: VENTRICULAR EXTRASYSTOLES
     Dosage: UNK
     Dates: start: 2020
  2. MAVENCLAD [Suspect]
     Active Substance: CLADRIBINE
     Indication: MULTIPLE SCLEROSIS
     Dosage: FIRST YEAR FIRST WEEK TREATMENT
     Route: 048
     Dates: start: 20200113
  3. DILTIAZEM. [Suspect]
     Active Substance: DILTIAZEM
     Indication: SUPRAVENTRICULAR EXTRASYSTOLES
     Dosage: UNK

REACTIONS (5)
  - Dizziness postural [Not Recovered/Not Resolved]
  - Lymphocyte count decreased [Unknown]
  - Supraventricular extrasystoles [Recovering/Resolving]
  - Suspected COVID-19 [Unknown]
  - Ventricular extrasystoles [Recovering/Resolving]

NARRATIVE: CASE EVENT DATE: 2020
